FAERS Safety Report 5059851-5 (Version None)
Quarter: 2006Q3

REPORT INFORMATION
  Report Type: 
  Country: None (occurrence: None)
  Receive Date: 20060724
  Receipt Date: 20060714
  Transmission Date: 20061208
  Serious: Yes (Hospitalization, Other)
  Sender: FDA-Public Use
  Company Number: GB-JNJFOC-20040600022

PATIENT
  Sex: Female
  Weight: 90 kg

DRUGS (4)
  1. DURAGESIC-100 [Suspect]
     Indication: HERNIA PAIN
     Route: 062
  2. THYROXINE [Concomitant]
  3. FYBOGEL [Concomitant]
  4. HRT [Concomitant]

REACTIONS (2)
  - CONVULSION [None]
  - DRUG INEFFECTIVE [None]
